FAERS Safety Report 18053400 (Version 1)
Quarter: 2020Q3

REPORT INFORMATION
  Report Type: Spontaneous
  Country: US (occurrence: US)
  Receive Date: 20200721
  Receipt Date: 20200721
  Transmission Date: 20201103
  Serious: No
  Sender: FDA-Public Use
  Company Number: None

PATIENT
  Age: 63 Year
  Sex: Female

DRUGS (1)
  1. PROLIA [Suspect]
     Active Substance: DENOSUMAB
     Route: 058
     Dates: start: 202004

REACTIONS (4)
  - Arthralgia [None]
  - Muscular weakness [None]
  - Neck pain [None]
  - Burning sensation [None]

NARRATIVE: CASE EVENT DATE: 20200429
